FAERS Safety Report 8374891-6 (Version None)
Quarter: 2012Q2

REPORT INFORMATION
  Report Type: 
  Country: None (occurrence: None)
  Receive Date: 20120521
  Receipt Date: 20120517
  Transmission Date: 20120825
  Serious: No
  Sender: FDA-Public Use
  Company Number: US-PFIZER INC-2012121252

PATIENT
  Sex: Female
  Weight: 81.179 kg

DRUGS (17)
  1. CHANTIX [Suspect]
     Indication: SMOKING CESSATION THERAPY
     Dosage: 0.5 MG, 1X/DAY
     Dates: start: 20120401, end: 20120101
  2. LYRICA [Suspect]
     Dosage: 150 MG, 2X/DAY
     Dates: start: 20110101
  3. FUROSEMIDE [Concomitant]
     Indication: RENAL FAILURE
     Dosage: 40 MG, DAILY
  4. GLIMEPIRIDE [Concomitant]
     Indication: DIABETES MELLITUS
     Dosage: 0.5 MG, DAILY
  5. PROTONIX [Concomitant]
     Indication: GASTROOESOPHAGEAL REFLUX DISEASE
     Dosage: 40 MG, 2X/DAY
  6. COMBIVENT [Concomitant]
     Indication: CHRONIC OBSTRUCTIVE PULMONARY DISEASE
     Dosage: UNK
  7. PROVENTIL-HFA [Concomitant]
     Indication: CHRONIC OBSTRUCTIVE PULMONARY DISEASE
     Dosage: UNK
  8. FORADIL [Concomitant]
     Indication: CHRONIC OBSTRUCTIVE PULMONARY DISEASE
     Dosage: 12 UG, 2X/DAY
  9. PLAQUENIL [Concomitant]
     Indication: SYSTEMIC LUPUS ERYTHEMATOSUS
     Dosage: 200 MG, DAILY
  10. CALCIUM ACETATE [Concomitant]
     Indication: BLOOD CALCIUM DECREASED
     Dosage: 667 MG, DAILY
  11. CHANTIX [Suspect]
     Dosage: UNK
     Dates: start: 20120101, end: 20120501
  12. LYRICA [Suspect]
     Dosage: 75 MG, 4X/DAY
     Dates: end: 20110101
  13. COMBIVENT [Concomitant]
     Indication: EMPHYSEMA
  14. CHLORDIAZEPOXIDE HYDROCHLORIDE AND CLIDINIUM BROMIDE [Concomitant]
     Indication: GASTROOESOPHAGEAL REFLUX DISEASE
     Dosage: UNK, 3X/DAY
  15. PROVENTIL-HFA [Concomitant]
     Indication: EMPHYSEMA
  16. FORADIL [Concomitant]
     Indication: EMPHYSEMA
  17. POTASSIUM CHLORIDE [Concomitant]
     Indication: BLOOD POTASSIUM DECREASED
     Dosage: 20 MEQ, DAILY

REACTIONS (4)
  - BLOOD CHOLESTEROL INCREASED [None]
  - SLEEP TALKING [None]
  - NERVOUSNESS [None]
  - NAUSEA [None]
